FAERS Safety Report 8135948-8 (Version None)
Quarter: 2012Q1

REPORT INFORMATION
  Report Type: 
  Country: None (occurrence: None)
  Receive Date: 20120214
  Receipt Date: 20120206
  Transmission Date: 20120608
  Serious: Yes (Other)
  Sender: FDA-Public Use
  Company Number: CA-ABBOTT-12P-028-0901706-00

PATIENT
  Sex: Female
  Weight: 54.48 kg

DRUGS (9)
  1. HUMIRA [Suspect]
     Indication: RHEUMATOID ARTHRITIS
     Route: 058
     Dates: end: 20111128
  2. CRESTOR [Concomitant]
     Indication: BLOOD CHOLESTEROL INCREASED
     Route: 048
  3. RABEPRAZOLE SODIUM [Concomitant]
     Indication: GASTRIC DISORDER
     Route: 048
  4. RABEPRAZOLE SODIUM [Concomitant]
     Indication: PROPHYLAXIS
  5. CYMBALTA [Concomitant]
     Indication: DEPRESSION
     Route: 048
  6. CLONAZEPAM [Concomitant]
     Indication: RESTLESS LEGS SYNDROME
     Route: 048
  7. HUMIRA [Suspect]
     Route: 058
     Dates: start: 20120206
  8. HUMIRA [Suspect]
     Route: 058
     Dates: start: 20120109, end: 20120109
  9. TYLENOL W/ CODEINE NO. 3 [Concomitant]
     Indication: MIGRAINE
     Route: 048

REACTIONS (2)
  - BUNION [None]
  - LOCALISED INFECTION [None]
